FAERS Safety Report 25226990 (Version 1)
Quarter: 2025Q2

REPORT INFORMATION
  Report Type: Spontaneous
  Country: US (occurrence: US)
  Receive Date: 20250422
  Receipt Date: 20250422
  Transmission Date: 20250717
  Serious: Yes (Other)
  Sender: BRISTOL-MYERS SQUIBB COMPANY
  Company Number: US-BRISTOL-MYERS SQUIBB COMPANY-2025-056035

PATIENT
  Age: 54 Year
  Sex: Male

DRUGS (3)
  1. BELATACEPT [Suspect]
     Active Substance: BELATACEPT
     Indication: Renal transplant
  2. PREDNISONE [Suspect]
     Active Substance: PREDNISONE
     Indication: Renal transplant
  3. MYCOPHENOLATE MOFETIL [Suspect]
     Active Substance: MYCOPHENOLATE MOFETIL
     Indication: Renal transplant

REACTIONS (2)
  - Large intestine infection [Unknown]
  - Histoplasmosis [Unknown]
